FAERS Safety Report 7574579-5 (Version None)
Quarter: 2011Q2

REPORT INFORMATION
  Report Type: 
  Country: None (occurrence: None)
  Receive Date: 20110627
  Receipt Date: 20110110
  Transmission Date: 20111010
  Serious: Yes (Other)
  Sender: FDA-Public Use
  Company Number: US-BAYER-201032450NA

PATIENT
  Age: 17 Year
  Sex: Female
  Weight: 88.435 kg

DRUGS (6)
  1. PROAIR HFA [Concomitant]
  2. PREVACID [Concomitant]
     Dosage: 15 MG, QD
     Route: 048
  3. ALBUTEROL SULFATE AUTOHALER [Concomitant]
  4. YAZ [Suspect]
     Indication: MENORRHAGIA
     Dosage: UNK
     Dates: start: 20071001, end: 20080501
  5. YAZ [Suspect]
     Indication: ACNE
  6. YAZ [Suspect]
     Indication: CONTRACEPTION
     Route: 048
     Dates: start: 20070801

REACTIONS (6)
  - VOMITING [None]
  - BILIARY DYSKINESIA [None]
  - CHOLECYSTITIS CHRONIC [None]
  - NAUSEA [None]
  - CHOLELITHIASIS [None]
  - ABDOMINAL PAIN UPPER [None]
